FAERS Safety Report 8725551 (Version 2)
Quarter: 2012Q4

REPORT INFORMATION
  Report Type: 
  Country: DE (occurrence: JP)
  Receive Date: 20120815
  Receipt Date: 20120928
  Transmission Date: 20130627
  Serious: Yes (Hospitalization)
  Sender: FDA-Public Use
  Company Number: JP-FRI-1000037224

PATIENT
  Age: 80 Year
  Sex: Female

DRUGS (13)
  1. MEMANTINE [Suspect]
     Indication: DEMENTIA ALZHEIMER^S TYPE
     Dosage: 5 mg
     Route: 048
     Dates: start: 20120509, end: 20120514
  2. MEMANTINE [Suspect]
     Dosage: 10 mg
     Route: 048
     Dates: start: 20120515, end: 20120522
  3. MEMANTINE [Suspect]
     Dosage: 15 mg
     Route: 048
     Dates: start: 20120523, end: 20120528
  4. MEMANTINE [Suspect]
     Indication: DEMENTIA ALZHEIMER^S TYPE
     Dosage: 20 mg
     Route: 048
     Dates: start: 20120529, end: 20120709
  5. ACTOS [Concomitant]
     Indication: DIABETES MELLITUS
     Dosage: 15 mg
     Route: 048
     Dates: start: 20110106
  6. KLARICID [Concomitant]
     Indication: BRONCHITIS CHRONIC
     Dosage: 200 mg
     Route: 048
     Dates: start: 20110106
  7. ARICEPT [Concomitant]
     Indication: DEMENTIA ALZHEIMER^S TYPE
     Dosage: 5 mg
     Route: 048
     Dates: start: 20120616
  8. EPADEL S [Concomitant]
     Indication: CEREBRAL INFARCTION
     Dosage: 3600 mg
     Route: 048
     Dates: start: 20110106
  9. MENITAZINE [Concomitant]
     Indication: CEREBRAL INFARCTION
     Dosage: 20 mg
     Route: 048
     Dates: start: 20120604
  10. KETAS [Concomitant]
     Indication: CEREBRAL INFARCTION
     Dosage: 90 mg
     Route: 048
     Dates: start: 20110106
  11. NICERGOLINE [Concomitant]
     Indication: CEREBRAL INFARCTION
     Dosage: 45 mg
     Route: 048
     Dates: start: 20110106
  12. MAGMITT [Concomitant]
     Indication: CONSTIPATION
     Dosage: 2970 mg
     Route: 048
     Dates: start: 20110106
  13. DESYREL [Concomitant]
     Indication: CEREBRAL INFARCTION
     Dosage: 225 mg
     Route: 048
     Dates: start: 20120515

REACTIONS (3)
  - Loss of consciousness [Recovered/Resolved]
  - Respiratory arrest [Recovered/Resolved]
  - Depressed level of consciousness [Recovered/Resolved]
